FAERS Safety Report 10376617 (Version 16)
Quarter: 2015Q3

REPORT INFORMATION
  Report Type: Report from Study
  Country: US (occurrence: US)
  Receive Date: 20140811
  Receipt Date: 20150828
  Transmission Date: 20151125
  Serious: Yes (Other)
  Sender: FDA-Public Use
  Company Number: US-SA-2014SA026461

PATIENT
  Age: 59 Year
  Sex: Female

DRUGS (3)
  1. AUBAGIO [Suspect]
     Active Substance: TERIFLUNOMIDE
     Indication: PROGRESSIVE MULTIPLE SCLEROSIS
     Route: 048
     Dates: start: 20140218, end: 201412
  2. AUBAGIO [Suspect]
     Active Substance: TERIFLUNOMIDE
     Indication: PROGRESSIVE MULTIPLE SCLEROSIS
     Route: 048
     Dates: start: 20150218
  3. AUBAGIO [Suspect]
     Active Substance: TERIFLUNOMIDE
     Indication: PROGRESSIVE MULTIPLE SCLEROSIS
     Route: 048
     Dates: start: 2015, end: 20150820

REACTIONS (30)
  - Hypokinesia [Not Recovered/Not Resolved]
  - Nausea [Unknown]
  - Tremor [Unknown]
  - Blood glucose increased [Unknown]
  - Tremor [Recovering/Resolving]
  - Dizziness [Unknown]
  - Fatigue [Unknown]
  - Product use issue [Unknown]
  - Sinus disorder [Unknown]
  - Paraesthesia [Not Recovered/Not Resolved]
  - Hypoaesthesia [Not Recovered/Not Resolved]
  - Multiple sclerosis relapse [Unknown]
  - Vertigo [Unknown]
  - Paraesthesia [Unknown]
  - Urinary tract infection [Unknown]
  - Hemiparesis [Unknown]
  - Tooth infection [Unknown]
  - Altered visual depth perception [Not Recovered/Not Resolved]
  - Insomnia [Unknown]
  - Unevaluable event [Unknown]
  - Fall [Unknown]
  - Abdominal discomfort [Unknown]
  - Polyp [Not Recovered/Not Resolved]
  - Urinary incontinence [Not Recovered/Not Resolved]
  - Dysstasia [Unknown]
  - Balance disorder [Not Recovered/Not Resolved]
  - Feeling abnormal [Not Recovered/Not Resolved]
  - Visual impairment [Unknown]
  - Nasopharyngitis [Unknown]
  - Arthralgia [Recovered/Resolved]

NARRATIVE: CASE EVENT DATE: 2014
